FAERS Safety Report 16083733 (Version 3)
Quarter: 2020Q3

REPORT INFORMATION
  Report Type: Spontaneous
  Country: CA (occurrence: CA)
  Receive Date: 20190318
  Receipt Date: 20200917
  Transmission Date: 20201102
  Serious: Yes (Hospitalization)
  Sender: FDA-Public Use
  Company Number: CA-PFIZER INC-2019110217

PATIENT
  Age: 71 Year
  Sex: Male

DRUGS (11)
  1. ATENOLOL. [Interacting]
     Active Substance: ATENOLOL
     Dosage: UNK
     Route: 048
  2. METOPROLOL SUCCINATE. [Concomitant]
     Active Substance: METOPROLOL SUCCINATE
     Dosage: UNK
  3. DILTIAZEM HCL [Interacting]
     Active Substance: DILTIAZEM HYDROCHLORIDE
     Dosage: UNK
  4. DILTIAZEM HCL [Interacting]
     Active Substance: DILTIAZEM HYDROCHLORIDE
     Dosage: 240 MG, 1X/DAY
  5. CILAZAPRIL [Interacting]
     Active Substance: CILAZAPRIL ANHYDROUS
     Dosage: 5 MG, 1X/DAY
  6. CILAZAPRIL [Interacting]
     Active Substance: CILAZAPRIL ANHYDROUS
     Dosage: UNK
  7. AMIODARONE [Concomitant]
     Active Substance: AMIODARONE
     Dosage: UNK
  8. SOTALOL. [Concomitant]
     Active Substance: SOTALOL
     Dosage: UNK
  9. DILTIAZEM HCL [Interacting]
     Active Substance: DILTIAZEM HYDROCHLORIDE
     Dosage: 300 MG, 1X/DAY
  10. ATENOLOL. [Interacting]
     Active Substance: ATENOLOL
     Dosage: 100 MG, 1X/DAY
  11. VERAPAMIL HCL [Suspect]
     Active Substance: VERAPAMIL HYDROCHLORIDE
     Dosage: 240 MG, 1X/DAY
     Route: 048

REACTIONS (16)
  - Asthenia [Unknown]
  - Heart rate increased [Unknown]
  - Dyspnoea [Unknown]
  - Pacemaker generated rhythm [Unknown]
  - Toxicity to various agents [Unknown]
  - Cardiogenic shock [Unknown]
  - Heart rate abnormal [Unknown]
  - Ejection fraction decreased [Unknown]
  - Drug interaction [Unknown]
  - Antiacetylcholine receptor antibody positive [Unknown]
  - Atrial fibrillation [Unknown]
  - Hypotension [Unknown]
  - Palpitations [Unknown]
  - Fatigue [Unknown]
  - Blood potassium increased [Unknown]
  - Ventricular hypokinesia [Unknown]
